FAERS Safety Report 20503841 (Version 1)
Quarter: 2022Q1

REPORT INFORMATION
  Report Type: Spontaneous
  Country: US (occurrence: None)
  Receive Date: 20220221
  Receipt Date: 20220221
  Transmission Date: 20220424
  Serious: Yes (Life-Threatening, Hospitalization, Disabling)
  Sender: FDA-Public Use
  Company Number: None

PATIENT
  Age: 71 Year
  Sex: Female
  Weight: 52.5 kg

DRUGS (2)
  1. WARFARIN [Suspect]
     Active Substance: WARFARIN
     Indication: Atrial fibrillation
     Dosage: FREQUENCY : DAILY;?
     Route: 048
     Dates: start: 20220119, end: 20220211
  2. enoxaparin 60mg subQ Q12H [Concomitant]
     Dates: start: 20220210, end: 20220213

REACTIONS (8)
  - Cerebral haemorrhage [None]
  - Atrial fibrillation [None]
  - Acute coronary syndrome [None]
  - Mental status changes [None]
  - Brain oedema [None]
  - Pupils unequal [None]
  - Wheezing [None]
  - Myocardial bridging [None]

NARRATIVE: CASE EVENT DATE: 20220213
